FAERS Safety Report 5951068-2 (Version None)
Quarter: 2008Q4

REPORT INFORMATION
  Report Type: 
  Country: None (occurrence: None)
  Receive Date: 20081111
  Receipt Date: 20081111
  Transmission Date: 20090506
  Serious: No
  Sender: FDA-Public Use
  Company Number: None

PATIENT
  Age: 55 Year
  Sex: Female
  Weight: 64.8644 kg

DRUGS (1)
  1. XYZAL [Suspect]
     Indication: URTICARIA
     Dosage: 5MG.  1 X NIGHTLY PO
     Route: 048
     Dates: start: 20081031, end: 20081102

REACTIONS (5)
  - BURNING SENSATION [None]
  - DIZZINESS [None]
  - FATIGUE [None]
  - HEART RATE INCREASED [None]
  - NAUSEA [None]
